FAERS Safety Report 8541070-9 (Version None)
Quarter: 2012Q3

REPORT INFORMATION
  Report Type: 
  Country: None (occurrence: None)
  Receive Date: 20120726
  Receipt Date: 20110906
  Transmission Date: 20120928
  Serious: No
  Sender: FDA-Public Use
  Company Number: US-ASTRAZENECA-2011SE50627

PATIENT
  Age: 66 Year
  Sex: Female
  Weight: 93.9 kg

DRUGS (6)
  1. SEROQUEL [Suspect]
     Route: 048
     Dates: start: 20110801
  2. ACTOS [Concomitant]
     Indication: DIABETES MELLITUS
  3. SEROQUEL [Suspect]
     Indication: SLEEP DISORDER
     Route: 048
     Dates: end: 20110801
  4. MEPANIX [Concomitant]
     Indication: FOLATE DEFICIENCY
  5. PAXAL [Concomitant]
  6. BLOOD PRESSURE MEDICATION [Concomitant]

REACTIONS (8)
  - BLOOD PRESSURE FLUCTUATION [None]
  - MALAISE [None]
  - SYNCOPE [None]
  - SOMNOLENCE [None]
  - NAUSEA [None]
  - BLOOD PRESSURE DECREASED [None]
  - ABASIA [None]
  - DIZZINESS [None]
